FAERS Safety Report 21593096 (Version 1)
Quarter: 2022Q4

REPORT INFORMATION
  Report Type: Spontaneous
  Country: US (occurrence: US)
  Receive Date: 20221114
  Receipt Date: 20221114
  Transmission Date: 20230113
  Serious: Yes (Other)
  Sender: FDA-Public Use
  Company Number: US-ABBVIE-22K-163-4420932-00

PATIENT
  Sex: Male

DRUGS (2)
  1. CARBIDOPA\LEVODOPA [Suspect]
     Active Substance: CARBIDOPA\LEVODOPA
     Indication: Parkinson^s disease
     Dosage: CONTENTS OF ONE CASSETTE FOR UP TO 16 HR/DAY. MD:1.4ML LOCKOUT 1 HR, CD:2.8ML/HR, ED:0.6ML
     Route: 050
     Dates: start: 20220531, end: 202206
  2. CARBIDOPA\LEVODOPA [Suspect]
     Active Substance: CARBIDOPA\LEVODOPA
     Route: 050
     Dates: start: 20220930

REACTIONS (25)
  - Catatonia [Unknown]
  - Sluggishness [Unknown]
  - Posture abnormal [Unknown]
  - Drug level increased [Unknown]
  - Mental disorder [Unknown]
  - Mobility decreased [Unknown]
  - Hypersomnia [Unknown]
  - Urinary tract infection [Unknown]
  - Muscle rigidity [Unknown]
  - Lethargy [Unknown]
  - Feeling abnormal [Unknown]
  - Metabolic disorder [Unknown]
  - Fear of death [Unknown]
  - Adverse drug reaction [Unknown]
  - Fatigue [Unknown]
  - Tremor [Unknown]
  - Fall [Unknown]
  - Fall [Unknown]
  - Delirium [Unknown]
  - Confusional state [Unknown]
  - Dyskinesia [Unknown]
  - Adverse drug reaction [Unknown]
  - Adverse drug reaction [Unknown]
  - Somnolence [Unknown]
  - Disorientation [Unknown]

NARRATIVE: CASE EVENT DATE: 20220101
